FAERS Safety Report 15054005 (Version 3)
Quarter: 2018Q3

REPORT INFORMATION
  Report Type: Spontaneous
  Country: US (occurrence: US)
  Receive Date: 20180622
  Receipt Date: 20180724
  Transmission Date: 20181010
  Serious: Yes (Hospitalization)
  Sender: FDA-Public Use
  Company Number: US-OPTINOSE US, INC.-US-2018OPT000092

PATIENT
  Age: 55 Year
  Sex: Female
  Weight: 83.9 kg

DRUGS (4)
  1. XHANCE [Suspect]
     Active Substance: FLUTICASONE PROPIONATE
     Indication: ANOSMIA
     Dosage: 186 ?G, BID (1 SPRAY IN EACH NOSTRIL ONCE DAILY)
     Route: 045
     Dates: start: 20180529
  2. PREDNISONE. [Concomitant]
     Active Substance: PREDNISONE
     Indication: SINUSITIS
     Dosage: UNK
     Route: 048
     Dates: start: 20180510, end: 201805
  3. XHANCE [Suspect]
     Active Substance: FLUTICASONE PROPIONATE
     Indication: SINUSITIS
     Dosage: 186 ?G, BID (1 SPRAY IN EACH NOSTRIL BID)
     Route: 045
     Dates: start: 20180509, end: 20180528
  4. HYDROCHLOROTHIAZIDE. [Concomitant]
     Active Substance: HYDROCHLOROTHIAZIDE
     Indication: HYPERTENSION
     Dosage: 25 MG, QD
     Route: 048
     Dates: start: 2012

REACTIONS (21)
  - Gait disturbance [Recovered/Resolved]
  - Dizziness [Recovered/Resolved]
  - Cardiac function test abnormal [Recovered/Resolved]
  - Vein collapse [Unknown]
  - Paranasal sinus hypersecretion [Not Recovered/Not Resolved]
  - Fall [Recovered/Resolved]
  - Headache [Recovering/Resolving]
  - Feeling abnormal [Unknown]
  - Ear discomfort [Recovering/Resolving]
  - Therapeutic response unexpected [Unknown]
  - Product use in unapproved indication [Unknown]
  - Panic attack [Recovered/Resolved]
  - Eye swelling [Recovering/Resolving]
  - Balance disorder [Unknown]
  - Disturbance in attention [Recovered/Resolved]
  - Physical examination abnormal [Recovered/Resolved]
  - Fear [Recovered/Resolved]
  - Somnolence [Not Recovered/Not Resolved]
  - Intentional underdose [Unknown]
  - Muscle tightness [Recovered/Resolved]
  - Drug intolerance [Not Recovered/Not Resolved]

NARRATIVE: CASE EVENT DATE: 2018
